FAERS Safety Report 17236176 (Version 2)
Quarter: 2020Q1

REPORT INFORMATION
  Report Type: Spontaneous
  Country: US (occurrence: US)
  Receive Date: 20200106
  Receipt Date: 20200323
  Transmission Date: 20200409
  Serious: No
  Sender: FDA-Public Use
  Company Number: US-MYLANLABS-2019M1127056

PATIENT
  Age: 71 Year
  Sex: Female
  Weight: 63 kg

DRUGS (1)
  1. ESTRADIOL TRANSDERMAL SYSTEM [Suspect]
     Active Substance: ESTRADIOL
     Indication: HORMONE REPLACEMENT THERAPY
     Dosage: ONCE WEEKLY
     Route: 062
     Dates: start: 20191209

REACTIONS (6)
  - Application site pain [Recovering/Resolving]
  - Application site irritation [Recovering/Resolving]
  - Product quality issue [Unknown]
  - Application site odour [Not Recovered/Not Resolved]
  - Application site scab [Recovering/Resolving]
  - Application site reaction [Recovering/Resolving]

NARRATIVE: CASE EVENT DATE: 20191214
